FAERS Safety Report 11345100 (Version 1)
Quarter: 2015Q3

REPORT INFORMATION
  Report Type: Spontaneous
  Country: BR (occurrence: BR)
  Receive Date: 20150806
  Receipt Date: 20150806
  Transmission Date: 20151125
  Serious: Yes (Other)
  Sender: FDA-Public Use
  Company Number: BR-SA-2015SA115150

PATIENT
  Age: 76 Year
  Sex: Female

DRUGS (2)
  1. LANTUS [Suspect]
     Active Substance: INSULIN GLARGINE
     Indication: TYPE 2 DIABETES MELLITUS
     Route: 065
  2. DEVICE NOS [Concomitant]
     Active Substance: DEVICE

REACTIONS (2)
  - Haemodialysis [Unknown]
  - Renal impairment [Unknown]

NARRATIVE: CASE EVENT DATE: 201507
